FAERS Safety Report 5588564-6 (Version None)
Quarter: 2008Q1

REPORT INFORMATION
  Report Type: 
  Country: None (occurrence: None)
  Receive Date: 20080111
  Receipt Date: 20070402
  Transmission Date: 20080703
  Serious: No
  Sender: FDA-Public Use
  Company Number: US-BRISTOL-MYERS SQUIBB COMPANY-13736202

PATIENT
  Sex: Male

DRUGS (1)
  1. TRAZODONE HCL [Suspect]
     Dates: start: 20070326

REACTIONS (1)
  - DRUG SCREEN FALSE POSITIVE [None]
